FAERS Safety Report 17537938 (Version 1)
Quarter: 2020Q1

REPORT INFORMATION
  Report Type: Spontaneous
  Country: ES (occurrence: ES)
  Receive Date: 20200313
  Receipt Date: 20200313
  Transmission Date: 20200409
  Serious: Yes (Other)
  Sender: FDA-Public Use
  Company Number: ES-PFIZER INC-2020105943

PATIENT
  Age: 43 Year
  Sex: Female

DRUGS (1)
  1. SULFASALAZINE. [Suspect]
     Active Substance: SULFASALAZINE
     Indication: CROHN^S DISEASE
     Dosage: UNK
     Route: 048
     Dates: start: 20200205, end: 20200208

REACTIONS (4)
  - Vomiting [Recovered/Resolved]
  - Dizziness [Recovered/Resolved]
  - Photophobia [Recovered/Resolved]
  - Malaise [Recovered/Resolved]

NARRATIVE: CASE EVENT DATE: 20200205
